FAERS Safety Report 5250892-1 (Version None)
Quarter: 2007Q1

REPORT INFORMATION
  Report Type: 
  Country: None (occurrence: None)
  Receive Date: 20070228
  Receipt Date: 20060725
  Transmission Date: 20070707
  Serious: Yes (Hospitalization, Other)
  Sender: FDA-Public Use
  Company Number: US-GLAXOSMITHKLINE-A0613482A

PATIENT
  Age: 15 Year
  Sex: Male

DRUGS (3)
  1. LAMICTAL [Suspect]
     Route: 048
     Dates: start: 20060101
  2. VALPROATE SODIUM [Concomitant]
  3. PSYCHOTROPIC DRUGS [Concomitant]

REACTIONS (1)
  - STEVENS-JOHNSON SYNDROME [None]
